FAERS Safety Report 9391016 (Version 1)
Quarter: 2013Q3

REPORT INFORMATION
  Report Type: Spontaneous
  Country: US (occurrence: None)
  Receive Date: 20130705
  Receipt Date: 20130705
  Transmission Date: 20140515
  Serious: Yes (Hospitalization)
  Sender: FDA-Public Use
  Company Number: None

PATIENT
  Age: 21 Year
  Sex: Male

DRUGS (1)
  1. BENZONATATE [Suspect]
     Indication: COUGH
     Dosage: 1-2 CAPSULES
     Route: 048
     Dates: start: 20130501, end: 20130501

REACTIONS (5)
  - Respiratory distress [None]
  - Hypersensitivity [None]
  - Bronchospasm [None]
  - Laryngospasm [None]
  - Circulatory collapse [None]
